FAERS Safety Report 14150402 (Version 2)
Quarter: 2018Q1

REPORT INFORMATION
  Report Type: Spontaneous
  Country: US (occurrence: US)
  Receive Date: 20171101
  Receipt Date: 20180108
  Transmission Date: 20180508
  Serious: Yes (Other)
  Sender: FDA-Public Use
  Company Number: US-GLAXOSMITHKLINE-US2017165459

PATIENT
  Age: 70 Year
  Sex: Female

DRUGS (1)
  1. THERAFLU EXPRESSMAX FLU, COUGH, AND SORE THROAT [Suspect]
     Active Substance: ACETAMINOPHEN\DIPHENHYDRAMINE HYDROCHLORIDE\PHENYLEPHRINE HYDROCHLORIDE
     Indication: NASOPHARYNGITIS
     Dosage: UNK
     Dates: start: 20171015, end: 20171025

REACTIONS (15)
  - Oropharyngeal pain [Unknown]
  - Insomnia [Unknown]
  - Condition aggravated [Unknown]
  - Hiatus hernia [Unknown]
  - Spinal osteoarthritis [Unknown]
  - Nasopharyngitis [Unknown]
  - Cerebral disorder [Unknown]
  - Nasal dryness [Unknown]
  - Headache [Unknown]
  - Therapeutic response unexpected [Unknown]
  - Cerebral palsy [Unknown]
  - Pain [Unknown]
  - Dizziness [Unknown]
  - Gait disturbance [Unknown]
  - Nasal discomfort [Unknown]

NARRATIVE: CASE EVENT DATE: 20171015
